FAERS Safety Report 4622921-7 (Version None)
Quarter: 2005Q1

REPORT INFORMATION
  Report Type: 
  Country: None (occurrence: None)
  Receive Date: 20050329
  Receipt Date: 20050103
  Transmission Date: 20050727
  Serious: Yes (Other)
  Sender: FDA-Public Use
  Company Number: THQ2005A00315

PATIENT
  Age: 58 Year
  Sex: Male

DRUGS (8)
  1. ACTOS [Suspect]
     Indication: DIABETES MELLITUS INSULIN-DEPENDENT
     Dosage: 30 MG PER ORAL
     Route: 048
     Dates: start: 20040625, end: 20041210
  2. LANTUS [Concomitant]
  3. FERROUS SULFATE TAB [Concomitant]
  4. NOVONORM (REPAGLINIDE) [Concomitant]
  5. ACENOCOUMAROL [Concomitant]
  6. LIPITOR [Concomitant]
  7. ARRESTAL [Concomitant]
  8. COZAAR [Concomitant]

REACTIONS (1)
  - HAEMATURIA [None]
